FAERS Safety Report 14236568 (Version 2)
Quarter: 2018Q1

REPORT INFORMATION
  Report Type: Spontaneous
  Country: US (occurrence: US)
  Receive Date: 20171129
  Receipt Date: 20180125
  Transmission Date: 20180508
  Serious: No
  Sender: FDA-Public Use
  Company Number: US-PFIZER INC-2017511128

PATIENT
  Age: 38 Year
  Sex: Female

DRUGS (4)
  1. EPICERAM [Concomitant]
     Active Substance: DEVICE
     Indication: ECZEMA
     Dosage: UNK UNK, 2X/DAY (TO FACE)
     Route: 061
     Dates: start: 2016
  2. ELIDEL [Concomitant]
     Active Substance: PIMECROLIMUS
     Indication: ECZEMA
     Dosage: UNK UNK, AS NEEDED
     Route: 061
  3. EUCRISA [Suspect]
     Active Substance: CRISABOROLE
     Indication: ECZEMA
     Dosage: UNK UNK, 2X/DAY, (APPLY TO AFFECTED AREAS )
     Route: 061
     Dates: start: 20171121
  4. EUCRISA [Suspect]
     Active Substance: CRISABOROLE
     Indication: DERMATITIS ATOPIC

REACTIONS (2)
  - Application site pruritus [Unknown]
  - Application site pain [Recovered/Resolved]

NARRATIVE: CASE EVENT DATE: 201711
